FAERS Safety Report 23658035 (Version 1)
Quarter: 2024Q1

REPORT INFORMATION
  Report Type: Spontaneous
  Country: US (occurrence: US)
  Receive Date: 20240321
  Receipt Date: 20240321
  Transmission Date: 20240409
  Serious: No
  Sender: FDA-Public Use
  Company Number: US-BRISTOL-MYERS SQUIBB COMPANY-2024-045305

PATIENT
  Age: 56 Year
  Sex: Female

DRUGS (3)
  1. REVLIMID [Suspect]
     Active Substance: LENALIDOMIDE
     Indication: Plasma cell myeloma
     Route: 048
     Dates: start: 202308
  2. NIVESTYM [FILGRASTIM] [Concomitant]
     Indication: Product used for unknown indication
     Dosage: 10X0.5ML
  3. ARCALYST [Concomitant]
     Active Substance: RILONACEPT
     Indication: Pericarditis
     Route: 058

REACTIONS (2)
  - Hypoaesthesia [Unknown]
  - Off label use [Unknown]
